FAERS Safety Report 5650211-2 (Version None)
Quarter: 2008Q1

REPORT INFORMATION
  Report Type: 
  Country: None (occurrence: None)
  Receive Date: 20080131
  Receipt Date: 20071226
  Transmission Date: 20080703
  Serious: No
  Sender: FDA-Public Use
  Company Number: US200712004896

PATIENT
  Age: 56 Year
  Sex: Male
  Weight: 147.4 kg

DRUGS (3)
  1. BYETTA [Suspect]
     Indication: WEIGHT CONTROL
     Dosage: 5 UG, 2/D, SUBCUTANEOUS
     Route: 058
     Dates: start: 20071101, end: 20071101
  2. HUMALOG MIX /01293501/ (INSULIN LISPRO) [Concomitant]
  3. METFORMIN HCL [Concomitant]

REACTIONS (10)
  - ASTHENIA [None]
  - BLOOD GLUCOSE INCREASED [None]
  - DISTURBANCE IN ATTENTION [None]
  - DIZZINESS [None]
  - DRUG INEFFECTIVE [None]
  - HEADACHE [None]
  - LETHARGY [None]
  - MALAISE [None]
  - NEUROPATHY PERIPHERAL [None]
  - VISION BLURRED [None]
